FAERS Safety Report 5016456-X (Version None)
Quarter: 2006Q2

REPORT INFORMATION
  Report Type: 
  Country: None (occurrence: None)
  Receive Date: 20060531
  Receipt Date: 20060531
  Transmission Date: 20061013
  Serious: Yes (Hospitalization)
  Sender: FDA-Public Use
  Company Number: None

PATIENT
  Age: 59 Year
  Sex: Male

DRUGS (2)
  1. METHADONE HCL [Suspect]
     Dosage: 10MG PO BID
     Route: 048
  2. OXYCODONE HCL [Suspect]
     Dosage: PRN

REACTIONS (2)
  - RESPIRATORY DEPRESSION [None]
  - URINARY RETENTION [None]
